FAERS Safety Report 11847828 (Version 1)
Quarter: 2015Q4

REPORT INFORMATION
  Report Type: Spontaneous
  Country: US (occurrence: FR)
  Receive Date: 20151217
  Receipt Date: 20151217
  Transmission Date: 20160305
  Serious: Yes (Hospitalization)
  Sender: FDA-Public Use
  Company Number: FR-AKRON, INC.-1045627

PATIENT
  Age: 76 Year
  Sex: Female

DRUGS (9)
  1. COSOPT [Suspect]
     Active Substance: DORZOLAMIDE HYDROCHLORIDE\TIMOLOL MALEATE
     Route: 047
     Dates: end: 20150924
  2. SIMVASTATIN. [Concomitant]
     Active Substance: SIMVASTATIN
  3. UVEDOSE (CHOLECALCIFEROL) [Concomitant]
  4. ATENOLOL. [Suspect]
     Active Substance: ATENOLOL
     Dates: end: 20150924
  5. RAMIPRIL. [Suspect]
     Active Substance: RAMIPRIL
     Dates: end: 20150924
  6. KARDEGIC (ASPIRIN LYSINE) [Concomitant]
  7. DILTIAZEM HYDROCHLORIDE. [Suspect]
     Active Substance: DILTIAZEM HYDROCHLORIDE
     Dates: end: 20150924
  8. LORAZEPAM. [Concomitant]
     Active Substance: LORAZEPAM
  9. DAFALGAN (ACETAMINOPHEN) [Concomitant]

REACTIONS (3)
  - Hypotension [Recovered/Resolved]
  - Bradycardia [Recovered/Resolved]
  - Malaise [Recovered/Resolved]
